FAERS Safety Report 10270033 (Version 1)
Quarter: 2014Q3

REPORT INFORMATION
  Report Type: Spontaneous
  Country: CH (occurrence: CH)
  Receive Date: 20140701
  Receipt Date: 20140701
  Transmission Date: 20150326
  Serious: Yes (Hospitalization, Disabling)
  Sender: FDA-Public Use
  Company Number: CH-ROCHE-1426222

PATIENT
  Age: 71 Year
  Sex: Male
  Weight: 99 kg

DRUGS (3)
  1. XELODA [Suspect]
     Active Substance: CAPECITABINE
     Indication: COLON CANCER RECURRENT
     Dosage: 1-0-1
     Route: 048
     Dates: start: 201205, end: 201206
  2. XELODA [Suspect]
     Active Substance: CAPECITABINE
     Dosage: BODY SURFACE AREA?CYCLE- 2
     Route: 048
     Dates: start: 20121011, end: 20121023
  3. XELODA [Suspect]
     Active Substance: CAPECITABINE
     Dosage: BODY SURFACE AREA?CYCLE- 1
     Route: 048
     Dates: start: 20120920, end: 20121003

REACTIONS (3)
  - Wheelchair user [Recovered/Resolved with Sequelae]
  - Urinary retention [Recovered/Resolved with Sequelae]
  - Acute polyneuropathy [Recovered/Resolved with Sequelae]

NARRATIVE: CASE EVENT DATE: 201209
